FAERS Safety Report 8830220 (Version 1)
Quarter: 2012Q4

REPORT INFORMATION
  Report Type: 
  Country: DE (occurrence: GB)
  Receive Date: 20121008
  Receipt Date: 20121008
  Transmission Date: 20130627
  Serious: Yes (Hospitalization)
  Sender: FDA-Public Use
  Company Number: GB-FRI-1000039238

PATIENT
  Sex: Female

DRUGS (4)
  1. MEMANTINE [Suspect]
     Indication: DEMENTIA
     Dosage: 40 mg
     Route: 048
  2. MEMANTINE [Suspect]
     Dosage: 20 mg
     Route: 048
  3. MEMANTINE [Suspect]
     Dosage: 40 mg
     Route: 048
  4. AMLODIPINE [Concomitant]
     Dosage: 5 mg
     Route: 048

REACTIONS (2)
  - Cognitive disorder [Recovered/Resolved]
  - Prescribed overdose [Not Recovered/Not Resolved]
